FAERS Safety Report 5771875-9 (Version None)
Quarter: 2008Q2

REPORT INFORMATION
  Report Type: 
  Country: None (occurrence: None)
  Receive Date: 20080613
  Receipt Date: 20080602
  Transmission Date: 20081010
  Serious: Yes (Hospitalization)
  Sender: FDA-Public Use
  Company Number: B0523531A

PATIENT
  Age: 17 Year
  Sex: Female

DRUGS (2)
  1. CLAMOXYL [Suspect]
     Indication: DRUG USE FOR UNKNOWN INDICATION
     Dosage: 2G PER DAY
     Route: 048
     Dates: start: 20071020, end: 20071027
  2. CLAMOXYL [Suspect]
     Dosage: 2G PER DAY
     Route: 048
     Dates: start: 20071115, end: 20071122

REACTIONS (8)
  - ABDOMINAL PAIN [None]
  - ANAEMIA HAEMOLYTIC AUTOIMMUNE [None]
  - ASTHENIA [None]
  - HEADACHE [None]
  - MYELOCYTOSIS [None]
  - NAUSEA [None]
  - PYREXIA [None]
  - VOMITING [None]
